FAERS Safety Report 8530350 (Version 4)
Quarter: 2012Q4

REPORT INFORMATION
  Report Type: Report from Study
  Country: CA (occurrence: CA)
  Receive Date: 20120425
  Receipt Date: 20120924
  Transmission Date: 20130627
  Serious: Yes (Hospitalization, Other)
  Sender: FDA-Public Use
  Company Number: CA-ABBOTT-12P-028-0927394-00

PATIENT
  Age: 58 None
  Sex: Male
  Weight: 77.18 kg

DRUGS (4)
  1. LUPRON DEPOT 30 MG [Suspect]
     Indication: PROSTATE CANCER
     Route: 030
     Dates: start: 201104
  2. BICALUTAMIDE [Suspect]
     Indication: PROSTATE CANCER
  3. CHEMOTHERAPY [Suspect]
     Indication: PROSTATE CANCER
     Dates: start: 2012
  4. FRAXIPARINE [Concomitant]
     Indication: PRODUCT USED FOR UNKNOWN INDICATION

REACTIONS (4)
  - Pulmonary embolism [Recovered/Resolved]
  - Thrombosis [Recovered/Resolved]
  - Fall [Unknown]
  - Prostatic specific antigen increased [Not Recovered/Not Resolved]
